FAERS Safety Report 10948934 (Version 1)
Quarter: 2015Q1

REPORT INFORMATION
  Report Type: Report from Study
  Country: SK (occurrence: SK)
  Receive Date: 20150324
  Receipt Date: 20150324
  Transmission Date: 20150721
  Serious: Yes (Other)
  Sender: FDA-Public Use
  Company Number: SK-ASTELLAS-2015US009000

PATIENT
  Age: 75 Year
  Sex: Male

DRUGS (8)
  1. AMLODIPIN                          /00972401/ [Concomitant]
     Active Substance: AMLODIPINE BESYLATE
     Indication: HYPERTENSION
     Dosage: 10 MG, DAILY
     Route: 048
     Dates: start: 20050101
  2. ANACID                             /00082501/ [Concomitant]
     Indication: GASTRITIS
     Dosage: 5 ML, DAILY
     Route: 048
     Dates: start: 20050101
  3. MIRABEGRON [Suspect]
     Active Substance: MIRABEGRON
     Indication: PRODUCT USED FOR UNKNOWN INDICATION
     Dosage: UNK UNK, UNKNOWN FREQ.
     Route: 065
  4. UROREC [Concomitant]
     Active Substance: SILODOSIN
     Indication: BENIGN PROSTATIC HYPERPLASIA
     Dosage: 4 MG, DAILY
     Route: 048
     Dates: start: 20150210
  5. ANACID                             /00082501/ [Concomitant]
     Indication: GASTROOESOPHAGEAL REFLUX DISEASE
  6. CORONAL                            /00133102/ [Concomitant]
     Indication: HYPERTENSION
     Dosage: 5 MG, DAILY
     Route: 048
     Dates: start: 20050101
  7. TICLOPIDIN [Concomitant]
     Active Substance: TICLOPIDINE
     Indication: PROPHYLAXIS
     Dosage: 50 MG, SINGLE
     Route: 060
     Dates: start: 20050101
  8. PANZYTRAT                          /00014701/ [Concomitant]
     Indication: DYSPEPSIA
     Dosage: 250 MG, DAILY
     Route: 048
     Dates: start: 20050101

REACTIONS (1)
  - Hypertension [Recovered/Resolved]

NARRATIVE: CASE EVENT DATE: 20150213
